FAERS Safety Report 13573911 (Version 1)
Quarter: 2017Q2

REPORT INFORMATION
  Report Type: Spontaneous
  Country: IT (occurrence: IT)
  Receive Date: 20170523
  Receipt Date: 20170523
  Transmission Date: 20170830
  Serious: Yes (Other)
  Sender: FDA-Public Use
  Company Number: PHHY2017IT072944

PATIENT
  Age: 41 Year
  Sex: Female

DRUGS (4)
  1. TYVERB [Interacting]
     Active Substance: LAPATINIB
     Dosage: 1250 MG, QD
     Route: 048
  2. CAPECITABINE ACCORD [Interacting]
     Active Substance: CAPECITABINE
     Indication: BREAST CANCER
     Dosage: 3500 MG, QD
     Route: 048
     Dates: start: 20161220, end: 20170313
  3. CAPECITABINE ACCORD [Interacting]
     Active Substance: CAPECITABINE
     Dosage: 3000 MG, QD
     Route: 048
  4. TYVERB [Suspect]
     Active Substance: LAPATINIB
     Indication: BREAST CANCER
     Dosage: 1250 MG, QD
     Route: 048
     Dates: start: 20161020, end: 20170313

REACTIONS (5)
  - Pain in extremity [Recovered/Resolved]
  - Erythema [Recovered/Resolved]
  - Skin toxicity [Recovered/Resolved]
  - Skin disorder [Unknown]
  - Drug interaction [Unknown]

NARRATIVE: CASE EVENT DATE: 20170313
